FAERS Safety Report 4703723-X (Version None)
Quarter: 2005Q2

REPORT INFORMATION
  Report Type: 
  Country: None (occurrence: None)
  Receive Date: 20050628
  Receipt Date: 20050124
  Transmission Date: 20051028
  Serious: Yes (Hospitalization, Other)
  Sender: FDA-Public Use
  Company Number: 2005030769

PATIENT
  Age: 71 Year
  Sex: Female
  Weight: 87.0906 kg

DRUGS (4)
  1. DETROL [Suspect]
     Indication: URINARY INCONTINENCE
     Dosage: ORAL
     Route: 048
     Dates: start: 19980101
  2. DETROL LA [Suspect]
     Indication: URINARY INCONTINENCE
     Dosage: 4 MG (1 IN 1 D), ORAL
     Route: 048
     Dates: start: 20050117
  3. OXYBUTYNIN CHLORIDE [Concomitant]
  4. DITROPAN [Concomitant]

REACTIONS (7)
  - APPLICATION SITE REACTION [None]
  - BLADDER OPERATION [None]
  - CONDITION AGGRAVATED [None]
  - INTESTINAL OPERATION [None]
  - SPINAL OPERATION [None]
  - URINARY INCONTINENCE [None]
  - VAGINAL OPERATION [None]
